FAERS Safety Report 8158963-7 (Version None)
Quarter: 2012Q1

REPORT INFORMATION
  Report Type: 
  Country: None (occurrence: None)
  Receive Date: 20120223
  Receipt Date: 20120220
  Transmission Date: 20120608
  Serious: Yes (Hospitalization)
  Sender: FDA-Public Use
  Company Number: IE-AMGEN-IRLSP2011060253

PATIENT
  Age: 67 Year
  Sex: Female

DRUGS (6)
  1. NEULASTA [Suspect]
     Indication: CHEMOTHERAPY
     Dosage: 6 MG, 3 TIMES/WK
     Route: 058
     Dates: start: 20111006
  2. ANTINEOPLASTIC AGENTS [Concomitant]
     Indication: BREAST CANCER
  3. IMODIUM [Concomitant]
  4. DEXAMETHASONE [Concomitant]
  5. LANSOPRAZOLE [Concomitant]
  6. MOTILIUM                           /00498201/ [Concomitant]

REACTIONS (1)
  - SUBCUTANEOUS ABSCESS [None]
